FAERS Safety Report 14121730 (Version 1)
Quarter: 2017Q4

REPORT INFORMATION
  Report Type: Spontaneous
  Country: US (occurrence: US)
  Receive Date: 20171024
  Receipt Date: 20171024
  Transmission Date: 20180321
  Serious: No
  Sender: FDA-Public Use
  Company Number: PHEH2017US033622

PATIENT
  Age: 32 Year
  Sex: Female

DRUGS (2)
  1. LORATADINE. [Suspect]
     Active Substance: LORATADINE
     Indication: HYPERSENSITIVITY
     Dosage: UNK UNK, PRN
     Route: 065
     Dates: start: 20170501, end: 20170508
  2. LORATADINE. [Suspect]
     Active Substance: LORATADINE
     Dosage: UNK UNK, PRN
     Route: 065
     Dates: start: 20170801, end: 20170806

REACTIONS (1)
  - Headache [Not Recovered/Not Resolved]

NARRATIVE: CASE EVENT DATE: 20171013
